FAERS Safety Report 5209279-X (Version None)
Quarter: 2006Q4

REPORT INFORMATION
  Report Type: 
  Country: None (occurrence: None)
  Receive Date: 20061101
  Receipt Date: 20060601
  Transmission Date: 20070319
  Serious: No
  Sender: FDA-Public Use
  Company Number: 2006PV014824

PATIENT
  Age: 76 Year
  Sex: Female
  Weight: 88.4514 kg

DRUGS (10)
  1. SYMLIN [Suspect]
     Indication: DIABETES MELLITUS
     Dosage: 30 MCG;TID;SC
     Route: 058
     Dates: start: 20060528
  2. LANTUS [Concomitant]
  3. NOVOLOG [Concomitant]
  4. SINGULAIR [Concomitant]
  5. NEXIUM [Concomitant]
  6. NIASPAN [Concomitant]
  7. ACTOS [Concomitant]
  8. SYNTHROID [Concomitant]
  9. VYTORIN [Concomitant]
  10. VICODIN [Concomitant]

REACTIONS (3)
  - BLOOD GLUCOSE DECREASED [None]
  - RASH [None]
  - WEIGHT DECREASED [None]
